FAERS Safety Report 15771805 (Version 2)
Quarter: 2019Q1

REPORT INFORMATION
  Report Type: Spontaneous
  Country: JP (occurrence: JP)
  Receive Date: 20181228
  Receipt Date: 20190117
  Transmission Date: 20190417
  Serious: No
  Sender: FDA-Public Use
  Company Number: JP-009507513-1812JPN003468J

PATIENT
  Age: 6 Decade
  Sex: Female

DRUGS (1)
  1. ATOZET COMBINATION TABLETS LD [Suspect]
     Active Substance: ATORVASTATIN CALCIUM\EZETIMIBE
     Dosage: UNK
     Route: 048

REACTIONS (1)
  - Hepatic function abnormal [Unknown]
